FAERS Safety Report 9240578 (Version 2)
Quarter: 2013Q2

REPORT INFORMATION
  Report Type: Spontaneous
  Country: US (occurrence: None)
  Receive Date: 20130417
  Receipt Date: 20130605
  Transmission Date: 20140414
  Serious: No
  Sender: FDA-Public Use
  Company Number: AEUSA201200461

PATIENT
  Age: 72 Year
  Sex: Female
  Weight: 59.42 kg

DRUGS (1)
  1. GAMASTAN [Suspect]
     Indication: IMMUNODEFICIENCY
     Route: 030
     Dates: start: 1993

REACTIONS (1)
  - Nonspecific reaction [None]
